FAERS Safety Report 13410224 (Version 5)
Quarter: 2017Q3

REPORT INFORMATION
  Report Type: Spontaneous
  Country: US (occurrence: US)
  Receive Date: 20170406
  Receipt Date: 20170720
  Transmission Date: 20171127
  Serious: Yes (Other)
  Sender: FDA-Public Use
  Company Number: US-TEVA-754574ACC

PATIENT
  Age: 25 Year
  Sex: Female
  Weight: 66.74 kg

DRUGS (1)
  1. PARAGARD T 380A [Suspect]
     Active Substance: COPPER
     Indication: CONTRACEPTION
     Dates: start: 20130425, end: 20170320

REACTIONS (8)
  - Device breakage [Recovered/Resolved]
  - Complication associated with device [Recovered/Resolved]
  - Vulvovaginal pruritus [Unknown]
  - Fungal infection [Recovered/Resolved]
  - Bacterial vaginosis [Recovered/Resolved]
  - Vulvovaginal discomfort [Unknown]
  - Liver function test increased [Unknown]
  - Hepatic steatosis [Unknown]

NARRATIVE: CASE EVENT DATE: 20150717
